FAERS Safety Report 5089479-2 (Version None)
Quarter: 2006Q3

REPORT INFORMATION
  Report Type: 
  Country: None (occurrence: None)
  Receive Date: 20060822
  Receipt Date: 20060811
  Transmission Date: 20061208
  Serious: Yes (Hospitalization)
  Sender: FDA-Public Use
  Company Number: T200600880

PATIENT
  Age: 20 Year
  Sex: Male
  Weight: 85 kg

DRUGS (1)
  1. OPTIRAY 350 [Suspect]
     Dosage: 50 ML, SINGLE, INTRAVENOUS
     Route: 042
     Dates: start: 20060624, end: 20060624

REACTIONS (3)
  - HYPERHIDROSIS [None]
  - PALLOR [None]
  - SOMNOLENCE [None]
